FAERS Safety Report 15752933 (Version 1)
Quarter: 2018Q4

REPORT INFORMATION
  Report Type: Spontaneous
  Country: GB (occurrence: GB)
  Receive Date: 20181221
  Receipt Date: 20181221
  Transmission Date: 20190205
  Serious: Yes (Other)
  Sender: FDA-Public Use
  Company Number: GB-TEVA-2018-GB-989650

PATIENT
  Age: 52 Year
  Sex: Female
  Weight: 63 kg

DRUGS (2)
  1. METRONIDAZOLE. [Suspect]
     Active Substance: METRONIDAZOLE
     Indication: BACTERIAL ABDOMINAL INFECTION
     Route: 048
     Dates: start: 20181114
  2. AMOXICILLIN. [Concomitant]
     Active Substance: AMOXICILLIN

REACTIONS (6)
  - Oral fungal infection [Unknown]
  - Oral pain [Unknown]
  - Gingival blister [Recovering/Resolving]
  - Oral mucosal blistering [Unknown]
  - Tongue blistering [Unknown]
  - Dysgeusia [Unknown]

NARRATIVE: CASE EVENT DATE: 20181115
